FAERS Safety Report 22522258 (Version 1)
Quarter: 2023Q2

REPORT INFORMATION
  Report Type: Spontaneous
  Country: KR (occurrence: KR)
  Receive Date: 20230605
  Receipt Date: 20230605
  Transmission Date: 20230721
  Serious: Yes (Hospitalization)
  Sender: FDA-Public Use
  Company Number: KR-ORGANON-O2305KOR003097

PATIENT
  Age: 74 Year
  Sex: Male
  Weight: 49 kg

DRUGS (10)
  1. COZAAR [Suspect]
     Active Substance: LOSARTAN POTASSIUM
     Dosage: 0.5 FORMULATION, 1 DAY; FILM-COATED TABLET
     Route: 048
  2. PIRFENIDONE [Suspect]
     Active Substance: PIRFENIDONE
     Dosage: 200 MILLIGRAM, 0.33 DAY
     Dates: start: 20190724
  3. REBAMIPIDE [Concomitant]
     Active Substance: REBAMIPIDE
     Dosage: 1 FORMULATION, 0.33 DAY
     Route: 048
  4. CEFTRIAXONE SODIUM [Concomitant]
     Active Substance: CEFTRIAXONE SODIUM
     Dosage: 1 FORMULATION, 1 DAY; ROUTE REPORTED AS VEIN
     Route: 042
  5. SITAGLIPTIN PHOSPHATE [Concomitant]
     Active Substance: SITAGLIPTIN PHOSPHATE
     Dosage: 1 FORMULATION, 1 DAY
     Route: 048
  6. PIOGLITAZONE HYDROCHLORIDE [Concomitant]
     Active Substance: PIOGLITAZONE HYDROCHLORIDE
     Dosage: UNCOATED TABLET, 1 FORMULATION, 1 DAY
     Route: 048
  7. DIGOXIN [Concomitant]
     Active Substance: DIGOXIN
     Dosage: UNCOATED TABLET, 0.5 FORMULATION, 1 DAY
     Route: 048
  8. AMMONIUM CHLORIDE;CHLORPHENAMINE MALEATE;DIHYDROCODEINE BITARTRATE;MET [Concomitant]
     Dosage: 1 FORMULATION, 0.33 DAY; FORMULATION REPORTED AS LIQUID SYRUP
     Route: 048
  9. LACTULOSE [Concomitant]
     Active Substance: LACTULOSE
     Dosage: 1 FORMULATION, 1 DAY
     Route: 048
  10. SPIRONOLACTONE [Concomitant]
     Active Substance: SPIRONOLACTONE
     Dosage: 0.5 FORMULATION, 1 DAY
     Route: 048

REACTIONS (2)
  - Pneumothorax [Recovering/Resolving]
  - Nausea [Recovering/Resolving]

NARRATIVE: CASE EVENT DATE: 20190728
